FAERS Safety Report 17692180 (Version 2)
Quarter: 2020Q2

REPORT INFORMATION
  Report Type: Spontaneous
  Country: US (occurrence: US)
  Receive Date: 20200422
  Receipt Date: 20200519
  Transmission Date: 20200714
  Serious: No
  Sender: FDA-Public Use
  Company Number: US-PFIZER INC-2020155502

PATIENT
  Age: 53 Year
  Sex: Male
  Weight: 117.93 kg

DRUGS (5)
  1. BUTRANS [Concomitant]
     Active Substance: BUPRENORPHINE
     Indication: PAIN
     Dosage: 10 MG, WEEKLY ( PATCH. CHANGE EVERY 7 DAYS AND PUT ON BACK OR ARM)
     Dates: start: 2014
  2. OXYCODONE [Concomitant]
     Active Substance: OXYCODONE
     Indication: PAIN
     Dosage: 15 MG, 3X/DAY
  3. LISINOPRIL. [Concomitant]
     Active Substance: LISINOPRIL
     Dosage: 20 MG, UNK
  4. PREGABALIN. [Suspect]
     Active Substance: PREGABALIN
     Indication: BURNING SENSATION
     Dosage: 100 MG, 3X/DAY
     Route: 048
     Dates: start: 20200401, end: 20200408
  5. LISINOPRIL. [Concomitant]
     Active Substance: LISINOPRIL
     Indication: HYPERTENSION
     Dosage: 10 MG, UNK
     Dates: start: 2005

REACTIONS (5)
  - Insomnia [Unknown]
  - Gait disturbance [Recovering/Resolving]
  - Stress [Unknown]
  - Restless legs syndrome [Recovered/Resolved]
  - Injury [Unknown]

NARRATIVE: CASE EVENT DATE: 20200401
